FAERS Safety Report 23133061 (Version 2)
Quarter: 2023Q4

REPORT INFORMATION
  Report Type: Spontaneous
  Country: US (occurrence: US)
  Receive Date: 20231101
  Receipt Date: 20231116
  Transmission Date: 20240109
  Serious: Yes (Other)
  Sender: FDA-Public Use
  Company Number: US-REGENERON PHARMACEUTICALS, INC.-2023-131320

PATIENT
  Sex: Female

DRUGS (1)
  1. EYLEA [Suspect]
     Active Substance: AFLIBERCEPT
     Indication: Retinal vein occlusion
     Dosage: UNK, Q6W,  LEFT EYE (FORMULATION: UNKNOWN)
     Route: 031
     Dates: end: 20230914

REACTIONS (4)
  - Brain oedema [Unknown]
  - Loss of consciousness [Unknown]
  - Product dose omission issue [Unknown]
  - Head injury [Unknown]

NARRATIVE: CASE EVENT DATE: 20230101
